FAERS Safety Report 20712215 (Version 1)
Quarter: 2022Q2

REPORT INFORMATION
  Report Type: Spontaneous
  Country: CA (occurrence: CA)
  Receive Date: 20220414
  Receipt Date: 20220414
  Transmission Date: 20220720
  Serious: Yes (Other)
  Sender: FDA-Public Use
  Company Number: CA-BAXTER-2022BAX007878

PATIENT
  Age: 7 Month

DRUGS (3)
  1. CYCLOPHOSPHAMIDE [Suspect]
     Active Substance: CYCLOPHOSPHAMIDE
     Indication: Familial haemophagocytic lymphohistiocytosis
     Dosage: DOSAGE FORM: NOT SPECIFIED
     Route: 062
  2. METHOTREXATE [Suspect]
     Active Substance: METHOTREXATE
     Indication: Familial haemophagocytic lymphohistiocytosis
     Dosage: DOSAGE FORM: NOT SPECIFIED
     Route: 062
  3. MYCOPHENOLATE MOFETIL [Suspect]
     Active Substance: MYCOPHENOLATE MOFETIL
     Indication: Familial haemophagocytic lymphohistiocytosis
     Dosage: DOSAGE FORM: NOT SPECIFIED
     Route: 062

REACTIONS (2)
  - Familial haemophagocytic lymphohistiocytosis [Unknown]
  - Product use in unapproved indication [Unknown]
